FAERS Safety Report 24393752 (Version 1)
Quarter: 2024Q4

REPORT INFORMATION
  Report Type: Spontaneous
  Country: US (occurrence: US)
  Receive Date: 20241003
  Receipt Date: 20241003
  Transmission Date: 20250115
  Serious: Yes (Death, Other)
  Sender: ADMA BIOLOGICS
  Company Number: US-ADMA BIOLOGICS INC.-US-2024ADM000127

PATIENT
  Age: 62 Year
  Sex: Male

DRUGS (8)
  1. HUMAN IMMUNOGLOBULIN G [Suspect]
     Active Substance: HUMAN IMMUNOGLOBULIN G
     Indication: Toxic shock syndrome streptococcal
     Dosage: UNK, UNK
     Route: 042
  2. HUMAN IMMUNOGLOBULIN G [Suspect]
     Active Substance: HUMAN IMMUNOGLOBULIN G
     Indication: Pneumonia streptococcal
  3. PENICILLIN [Suspect]
     Active Substance: PENICILLIN
     Indication: Toxic shock syndrome streptococcal
     Dosage: UNK, UNK
     Route: 065
  4. PENICILLIN [Suspect]
     Active Substance: PENICILLIN
     Indication: Pneumonia streptococcal
  5. PENICILLIN [Suspect]
     Active Substance: PENICILLIN
     Indication: Influenza
  6. CLINDAMYCIN [Suspect]
     Active Substance: CLINDAMYCIN
     Indication: Toxic shock syndrome streptococcal
     Dosage: UNK, UNK
     Route: 065
  7. CLINDAMYCIN [Suspect]
     Active Substance: CLINDAMYCIN
     Indication: Pneumonia streptococcal
  8. CLINDAMYCIN [Suspect]
     Active Substance: CLINDAMYCIN
     Indication: Influenza

REACTIONS (4)
  - Death [Fatal]
  - Distributive shock [Unknown]
  - Peripheral ischaemia [Unknown]
  - Off label use [Unknown]
